FAERS Safety Report 10437862 (Version 2)
Quarter: 2014Q3

REPORT INFORMATION
  Report Type: Spontaneous
  Country: CH (occurrence: None)
  Receive Date: 20140904
  Receipt Date: 20140916
  Transmission Date: 20150326
  Serious: Yes (Hospitalization, Other)
  Sender: FDA-Public Use
  Company Number: 20140561

PATIENT
  Age: 58 Year
  Sex: Male

DRUGS (6)
  1. MAGNESIUM [Concomitant]
     Active Substance: MAGNESIUM
  2. VENOFER [Suspect]
     Active Substance: IRON SUCROSE
     Indication: IRON DEFICIENCY ANAEMIA
     Route: 040
     Dates: start: 20140808, end: 20140808
  3. CALCIUM [Concomitant]
     Active Substance: CALCIUM
  4. DOBUTAMINE HYDROCHLORIDE (INOTROPEA) [Concomitant]
  5. ASACOL (MESALAZINE) [Concomitant]
  6. TPN (PYRIDOXINE HYDROCHLORIDE) [Concomitant]

REACTIONS (8)
  - Pyrexia [None]
  - Hypotension [None]
  - Dyspnoea [None]
  - Malaise [None]
  - Nausea [None]
  - Diarrhoea [None]
  - Asthenia [None]
  - Heart rate increased [None]

NARRATIVE: CASE EVENT DATE: 20140808
